FAERS Safety Report 7906354-3 (Version None)
Quarter: 2011Q4

REPORT INFORMATION
  Report Type: 
  Country: None (occurrence: None)
  Receive Date: 20111110
  Receipt Date: 20111107
  Transmission Date: 20120403
  Serious: Yes (Other)
  Sender: FDA-Public Use
  Company Number: US-PFIZER INC-2010054200

PATIENT
  Sex: Female

DRUGS (37)
  1. TRAMADOL [Concomitant]
     Indication: OSTEOARTHRITIS
     Dosage: UNK
     Dates: start: 20010101
  2. NICOTINE [Concomitant]
     Indication: SMOKING CESSATION THERAPY
     Dosage: UNK
     Dates: start: 20020101, end: 20110101
  3. ELAVIL [Concomitant]
     Indication: DEPRESSION
     Dosage: UNK
     Dates: start: 19950101
  4. HUMULIN R [Concomitant]
     Indication: DIABETES MELLITUS
     Dosage: UNK
     Dates: start: 20070101, end: 20090101
  5. LANTUS [Concomitant]
     Indication: DIABETES MELLITUS
     Dosage: UNK
     Dates: start: 20020101
  6. RISPERDAL [Concomitant]
     Indication: SCHIZOPHRENIA
  7. ELAVIL [Concomitant]
     Indication: INSOMNIA
  8. CHANTIX [Suspect]
     Indication: SMOKING CESSATION THERAPY
     Dosage: STARTING MONTH PACK 0.5MG AND 1MG
     Dates: start: 20070725, end: 20070801
  9. RAMIPRIL [Concomitant]
     Indication: HYPERTENSION
     Dosage: UNK
     Dates: start: 20030101
  10. BENADRYL [Concomitant]
     Indication: INSOMNIA
  11. ELAVIL [Concomitant]
     Indication: BIPOLAR DISORDER
  12. ALBUTEROL [Concomitant]
     Indication: BRONCHITIS
     Dosage: UNK
     Dates: start: 20060101, end: 20100101
  13. CHANTIX [Suspect]
     Dosage: STARTER MONTH PACK 0.5 AND 1MG
     Dates: start: 20080423, end: 20080701
  14. COLACE [Concomitant]
     Indication: CONSTIPATION
     Dosage: UNK
     Dates: start: 19990101
  15. BENADRYL [Concomitant]
     Indication: HYPERSENSITIVITY
  16. SEROQUEL [Concomitant]
     Indication: BIPOLAR DISORDER
  17. NYSTATIN [Concomitant]
     Indication: ANTIFUNGAL TREATMENT
     Dosage: UNK
     Dates: start: 20060101, end: 20090101
  18. RISPERDAL [Concomitant]
     Indication: DEPRESSION
     Dosage: UNK
     Dates: start: 20020101, end: 20110101
  19. POTASSIUM CHLORIDE [Concomitant]
     Indication: HYPOKALAEMIA
     Dosage: UNK
     Dates: start: 20030101
  20. FENOFIBRATE [Concomitant]
     Indication: HYPERLIPIDAEMIA
     Dosage: UNK
     Dates: start: 20010101
  21. NORCO [Concomitant]
     Indication: OSTEOARTHRITIS
     Dosage: UNK
     Dates: start: 20060101
  22. RESTORIL [Concomitant]
     Indication: INSOMNIA
     Dosage: UNK
     Dates: start: 19960101
  23. PROMETHAZINE W/ CODEINE [Concomitant]
     Indication: COUGH
     Dosage: UNK
     Dates: start: 20010101, end: 20090101
  24. LASIX [Concomitant]
     Indication: OEDEMA
     Dosage: UNK
     Dates: start: 20030101
  25. NEXIUM [Concomitant]
     Indication: GASTROOESOPHAGEAL REFLUX DISEASE
     Dosage: UNK
     Dates: start: 20030101
  26. BENADRYL [Concomitant]
     Indication: MUSCULOSKELETAL STIFFNESS
     Dosage: UNK
     Dates: start: 20030101
  27. HYDROCODONE [Concomitant]
     Indication: PAIN
     Dosage: UNK
     Dates: start: 20040101, end: 20100101
  28. ULTRAM [Concomitant]
     Indication: OSTEOARTHRITIS
     Dosage: UNK
     Dates: start: 20010101
  29. GLUCOPHAG [Concomitant]
     Indication: DIABETES MELLITUS
     Dosage: UNK
     Dates: start: 19960101
  30. PHENAZOPYRIDINE HCL TAB [Concomitant]
     Indication: URINARY TRACT INFECTION
     Dosage: UNK
     Dates: start: 20020101
  31. BACLOFEN [Concomitant]
     Indication: MUSCLE RELAXANT THERAPY
     Dosage: UNK
     Dates: start: 20040101
  32. ALTACE [Concomitant]
     Indication: HYPERTENSION
     Dosage: UNK
     Dates: start: 20030101
  33. RISPERDAL [Concomitant]
     Indication: BIPOLAR DISORDER
  34. METFORMIN [Concomitant]
     Indication: DIABETES MELLITUS
     Dosage: UNK
     Dates: start: 19940101
  35. ACTOS [Concomitant]
     Indication: DIABETES MELLITUS
     Dosage: UNK
     Dates: start: 20030101
  36. DIFLUCAN [Concomitant]
     Indication: FUNGAL INFECTION
     Dosage: UNK
     Dates: start: 20020101, end: 20090101
  37. SEROQUEL [Concomitant]
     Indication: DEPRESSION
     Dosage: UNK
     Dates: start: 20050101

REACTIONS (8)
  - INTENTIONAL OVERDOSE [None]
  - HALLUCINATION, AUDITORY [None]
  - DEPRESSION [None]
  - PARANOIA [None]
  - SUICIDE ATTEMPT [None]
  - SUICIDAL IDEATION [None]
  - AGGRESSION [None]
  - ANXIETY [None]
